FAERS Safety Report 4348322-7 (Version None)
Quarter: 2004Q2

REPORT INFORMATION
  Report Type: 
  Country: None (occurrence: None)
  Receive Date: 20040427
  Receipt Date: 20040423
  Transmission Date: 20050107
  Serious: Yes (Other)
  Sender: FDA-Public Use
  Company Number: US-GLAXOSMITHKLINE-A0508352A

PATIENT
  Age: 44 Year
  Sex: Female

DRUGS (5)
  1. PAXIL [Suspect]
     Indication: DEPRESSION
     Dosage: 20MG PER DAY
     Route: 048
     Dates: start: 19930101, end: 20021101
  2. PAXIL CR [Suspect]
     Indication: DEPRESSION
     Route: 048
     Dates: start: 20030101
  3. ATARAX [Concomitant]
  4. AMBIEN [Concomitant]
  5. RESTORIL [Concomitant]

REACTIONS (2)
  - HALLUCINATION [None]
  - SUICIDAL IDEATION [None]
